FAERS Safety Report 19532300 (Version 2)
Quarter: 2022Q2

REPORT INFORMATION
  Report Type: Report from Study
  Country: PA (occurrence: PA)
  Receive Date: 20210713
  Receipt Date: 20220615
  Transmission Date: 20220721
  Serious: Yes (Other)
  Sender: FDA-Public Use
  Company Number: PA-NOVARTISPH-PHHY2018PA140707

PATIENT
  Sex: Female
  Weight: 65.771 kg

DRUGS (1)
  1. GILENYA [Suspect]
     Active Substance: FINGOLIMOD HYDROCHLORIDE
     Indication: Multiple sclerosis
     Dosage: 0.5 MG, QD
     Route: 048
     Dates: start: 20180810

REACTIONS (7)
  - Trigeminal neuralgia [Not Recovered/Not Resolved]
  - Tooth disorder [Unknown]
  - Pain [Unknown]
  - Tremor [Unknown]
  - Dysgraphia [Unknown]
  - Motor dysfunction [Unknown]
  - Visual impairment [Unknown]
